FAERS Safety Report 5813738-6 (Version None)
Quarter: 2008Q3

REPORT INFORMATION
  Report Type: 
  Country: None (occurrence: None)
  Receive Date: 20080717
  Receipt Date: 20080707
  Transmission Date: 20090109
  Serious: Yes (Hospitalization, Disabling)
  Sender: FDA-Public Use
  Company Number: US-AVENTIS-200814196US

PATIENT
  Sex: Female
  Weight: 52.7 kg

DRUGS (11)
  1. TAXOTERE [Suspect]
     Indication: OVARIAN CANCER
     Dosage: DOSE: UNK
     Dates: start: 20070601
  2. TAXOTERE [Suspect]
     Dosage: DOSE: UNK
     Dates: start: 20070829
  3. TAXOTERE [Suspect]
     Dosage: DOSE: UNK
     Dates: start: 20071009
  4. TAXOTERE [Suspect]
     Dosage: DOSE: UNK
     Dates: start: 20071106
  5. CARBOPLATIN [Concomitant]
     Dosage: DOSE: UNK
  6. ELAVIL [Concomitant]
  7. MULTI-VITAMINS [Concomitant]
     Dosage: DOSE: UNK
  8. CALCIUM WITH VITAMIN D             /00944201/ [Concomitant]
     Dosage: DOSE: UNK
  9. FISH OIL [Concomitant]
     Dosage: DOSE: UNK
  10. ^VITAMIN D 50^ [Concomitant]
     Dosage: DOSE: UNK
  11. PROTONIX [Concomitant]
     Dosage: DOSE: UNK

REACTIONS (4)
  - ACTIVITIES OF DAILY LIVING IMPAIRED [None]
  - PARANEOPLASTIC CEREBELLAR DEGENERATION [None]
  - PERSONALITY CHANGE [None]
  - WHEELCHAIR USER [None]
